FAERS Safety Report 5102820-7 (Version None)
Quarter: 2006Q3

REPORT INFORMATION
  Report Type: 
  Country: None (occurrence: None)
  Receive Date: 20060907
  Receipt Date: 20060830
  Transmission Date: 20061208
  Serious: Yes (Hospitalization)
  Sender: FDA-Public Use
  Company Number: E3810-00203-SPO-GB

PATIENT
  Sex: Female

DRUGS (4)
  1. RABEPRAZOLE SODIUM [Suspect]
     Indication: REFLUX GASTRITIS
     Dosage: 10 MG, 1 IN 1D, ORAL
     Route: 048
     Dates: start: 19991001, end: 19991008
  2. BECLOMETHASONE (BECLOMETASONE DIPROPIONATE) [Concomitant]
  3. SALBUTAMOL (SALBUTAMOL) [Concomitant]
  4. VIRUS INFLUENZA (INFLUENZA VIRUS VACCINE POLYVALENT) [Concomitant]

REACTIONS (3)
  - ARTHRALGIA [None]
  - LEUKOCYTOCLASTIC VASCULITIS [None]
  - RASH [None]
